FAERS Safety Report 10093175 (Version 1)
Quarter: 2014Q2

REPORT INFORMATION
  Report Type: Spontaneous
  Country: US (occurrence: US)
  Receive Date: 20140421
  Receipt Date: 20140421
  Transmission Date: 20141212
  Serious: No
  Sender: FDA-Public Use
  Company Number: US-SA-2013SA107244

PATIENT
  Age: 47 Year
  Sex: Male

DRUGS (1)
  1. ALLEGRA [Suspect]
     Indication: MULTIPLE ALLERGIES
     Route: 048

REACTIONS (5)
  - Syncope [Not Recovered/Not Resolved]
  - Malaise [Not Recovered/Not Resolved]
  - Dizziness [Not Recovered/Not Resolved]
  - Nausea [Recovered/Resolved]
  - Extra dose administered [Unknown]
